FAERS Safety Report 9056158 (Version 3)
Quarter: 2013Q4

REPORT INFORMATION
  Report Type: Spontaneous
  Country: JP (occurrence: JP)
  Receive Date: 20130205
  Receipt Date: 20131231
  Transmission Date: 20140711
  Serious: Yes (Hospitalization, Other)
  Sender: FDA-Public Use
  Company Number: JP-PFIZER INC-2013044373

PATIENT
  Age: 53 Year
  Sex: Male
  Weight: 63 kg

DRUGS (6)
  1. CELECOX [Suspect]
     Indication: RHEUMATOID ARTHRITIS
     Dosage: 400 MG, 1X/DAY
     Route: 048
     Dates: start: 20120511
  2. CDP-870 [Suspect]
     Indication: RHEUMATOID ARTHRITIS
     Dosage: 200 MG, EVERY 2 WEEKS (OR PLACEBO)
     Route: 065
     Dates: start: 20120531, end: 20121113
  3. CRAVIT [Concomitant]
     Indication: LOCAL SWELLING
     Dosage: UNK
     Dates: start: 20121122
  4. METHOTREXATE [Concomitant]
     Dosage: UNK
     Dates: end: 20121127
  5. MUCOSTA [Concomitant]
     Indication: PROPHYLAXIS
     Dosage: 300 MG, DAILY
     Route: 048
     Dates: start: 20120420
  6. PARIET [Concomitant]
     Indication: PROPHYLAXIS
     Dosage: 10 MG, 1X/DAY
     Dates: start: 20120420

REACTIONS (2)
  - Pyelonephritis acute [Recovered/Resolved]
  - Pleurisy [Recovered/Resolved]
